FAERS Safety Report 9536185 (Version 1)
Quarter: 2013Q2

REPORT INFORMATION
  Report Type: Spontaneous
  Country: US (occurrence: None)
  Receive Date: 20130424
  Receipt Date: 20130424
  Transmission Date: 20140414
  Serious: Yes (Other)
  Sender: FDA-Public Use
  Company Number: VAL_01782_2013

PATIENT
  Sex: Male

DRUGS (2)
  1. LOPRESSOR [Suspect]
  2. METOPROLOL [Suspect]

REACTIONS (2)
  - Palpitations [None]
  - Arrhythmia [None]
